FAERS Safety Report 9796447 (Version 1)
Quarter: 2014Q1

REPORT INFORMATION
  Report Type: Spontaneous
  Country: US (occurrence: US)
  Receive Date: 20140103
  Receipt Date: 20140103
  Transmission Date: 20141002
  Serious: No
  Sender: FDA-Public Use
  Company Number: US-PFIZER INC-2013374725

PATIENT
  Age: 79 Year
  Sex: Female
  Weight: 81.63 kg

DRUGS (2)
  1. DETROL LA [Suspect]
     Indication: URINARY INCONTINENCE
     Dosage: 4 MG, DAILY
     Dates: start: 201312
  2. LISINOPRIL [Concomitant]
     Indication: CARDIAC DISORDER
     Dosage: UNK

REACTIONS (1)
  - Drug ineffective [Unknown]
